FAERS Safety Report 8609510-4 (Version None)
Quarter: 2012Q3

REPORT INFORMATION
  Report Type: 
  Country: None (occurrence: None)
  Receive Date: 20120821
  Receipt Date: 20120815
  Transmission Date: 20120928
  Serious: Yes (Other)
  Sender: FDA-Public Use
  Company Number: AR-PFIZER INC-2012178548

PATIENT
  Age: 75 Year
  Sex: Female

DRUGS (7)
  1. SOMAVERT [Suspect]
     Dosage: 15 MG, 1X/DAY
     Route: 058
     Dates: start: 20120701
  2. SOMAVERT [Suspect]
     Indication: ACROMEGALY
     Dosage: 10 MG, 1X/DAY
     Dates: start: 20120301
  3. DIURET [Concomitant]
     Dosage: UNK
  4. LEVOTHYROXINE [Concomitant]
     Dosage: UNK
  5. CARVEDILOL [Concomitant]
     Dosage: 25 MG, 1X/DAY
     Route: 048
  6. LOTRIAL [Concomitant]
     Dosage: 5 MG, 1X/DAY
     Route: 048
  7. VASOTENAL ^PHARMA INVESTI^ [Concomitant]
     Dosage: 20 MG, 1X/DAY
     Route: 048

REACTIONS (4)
  - COLITIS [None]
  - LIVER DISORDER [None]
  - ERUCTATION [None]
  - ABDOMINAL DISTENSION [None]
